FAERS Safety Report 20671910 (Version 2)
Quarter: 2022Q2

REPORT INFORMATION
  Report Type: Spontaneous
  Country: PK (occurrence: PK)
  Receive Date: 20220405
  Receipt Date: 20220609
  Transmission Date: 20220721
  Serious: Yes (Other)
  Sender: FDA-Public Use
  Company Number: PK-PFIZER INC-202200464835

PATIENT
  Age: 28 Year
  Sex: Male

DRUGS (4)
  1. ENBREL [Suspect]
     Active Substance: ETANERCEPT
     Indication: Spondylitis
     Dosage: 50 MG, WEEKLY
     Route: 058
     Dates: start: 20211220
  2. ENBREL [Suspect]
     Active Substance: ETANERCEPT
     Dosage: 50 MG, EVERY 10TH DAY
     Route: 058
     Dates: start: 20220512
  3. RAZODEX [Concomitant]
     Dosage: 30 MG, 1X/DAY
  4. DICLOFENAC POTASSIUM [Concomitant]
     Active Substance: DICLOFENAC POTASSIUM
     Dosage: 50 MG, 1X/DAY

REACTIONS (5)
  - Eosinophilia myalgia syndrome [Unknown]
  - Off label use [Unknown]
  - Synovitis [Unknown]
  - Arthralgia [Unknown]
  - Rash [Unknown]

NARRATIVE: CASE EVENT DATE: 20220512
